FAERS Safety Report 17654350 (Version 2)
Quarter: 2020Q2

REPORT INFORMATION
  Report Type: Spontaneous
  Country: US (occurrence: US)
  Receive Date: 20200410
  Receipt Date: 20200507
  Transmission Date: 20200713
  Serious: Yes (Death, Hospitalization, Other)
  Sender: FDA-Public Use
  Company Number: US-GLAXOSMITHKLINE-US2020AMR061616

PATIENT
  Age: 93 Year
  Sex: Male

DRUGS (1)
  1. TRELEGY ELLIPTA [Suspect]
     Active Substance: FLUTICASONE FUROATE\UMECLIDINIUM BROMIDE\VILANTEROL TRIFENATATE
     Indication: PRODUCT USED FOR UNKNOWN INDICATION
     Dosage: UNK 100/62.5/25 MCG
     Route: 065
     Dates: start: 20181102

REACTIONS (3)
  - Aneurysm [Not Recovered/Not Resolved]
  - Aneurysm ruptured [Fatal]
  - Pneumonia [Unknown]

NARRATIVE: CASE EVENT DATE: 20200403
